FAERS Safety Report 7027450-1 (Version None)
Quarter: 2010Q4

REPORT INFORMATION
  Report Type: 
  Country: None (occurrence: None)
  Receive Date: 20101001
  Receipt Date: 20101001
  Transmission Date: 20110411
  Serious: Yes (Hospitalization)
  Sender: FDA-Public Use
  Company Number: None

PATIENT
  Sex: Female
  Weight: 53.0709 kg

DRUGS (12)
  1. VYTORIN [Suspect]
     Indication: HYPERLIPIDAEMIA
     Dosage: 10/20 MG EVERY EVENING ORALLY
     Route: 048
     Dates: start: 20100715, end: 20100914
  2. CETIRIZINE HCL [Concomitant]
  3. SLOW MAG [Concomitant]
  4. WARFARIN SODIUM [Concomitant]
  5. ULTRAM [Concomitant]
  6. IMODIUM [Concomitant]
  7. VOLTAREN [Concomitant]
  8. VITAMIN D [Concomitant]
  9. KLOR-CON [Concomitant]
  10. BENICAR [Concomitant]
  11. VERAPAMIL [Concomitant]
  12. TEKTURNA [Concomitant]

REACTIONS (3)
  - ELECTROLYTE IMBALANCE [None]
  - PANCREATIC CALCIFICATION [None]
  - PANCREATITIS ACUTE [None]
